FAERS Safety Report 25859550 (Version 2)
Quarter: 2025Q4

REPORT INFORMATION
  Report Type: Spontaneous
  Country: TR (occurrence: TR)
  Receive Date: 20250929
  Receipt Date: 20251224
  Transmission Date: 20260117
  Serious: Yes (Hospitalization, Other)
  Sender: BRISTOL-MYERS SQUIBB COMPANY
  Company Number: TR-BRISTOL-MYERS SQUIBB COMPANY-2025-131152

PATIENT
  Age: 53 Year
  Sex: Male

DRUGS (4)
  1. OPDIVO [Suspect]
     Active Substance: NIVOLUMAB
     Indication: Renal cell carcinoma
  2. YERVOY [Suspect]
     Active Substance: IPILIMUMAB
     Indication: Renal cell carcinoma
  3. LINAGLIPTIN [Concomitant]
     Active Substance: LINAGLIPTIN
     Indication: Diabetes mellitus
  4. FENOFIBRATE [Concomitant]
     Active Substance: FENOFIBRATE
     Indication: Dyslipidaemia

REACTIONS (8)
  - Hypophysitis [Unknown]
  - Pneumonitis [Recovered/Resolved]
  - Nephritis [Unknown]
  - Streptococcus test positive [Recovering/Resolving]
  - Fatigue [Unknown]
  - Thyroiditis [Unknown]
  - Hyperglycaemia [Unknown]
  - Pericardial effusion [Recovered/Resolved]

NARRATIVE: CASE EVENT DATE: 20240801
